FAERS Safety Report 10152838 (Version 1)
Quarter: 2014Q2

REPORT INFORMATION
  Report Type: Report from Study
  Country: US (occurrence: US)
  Receive Date: 20140505
  Receipt Date: 20140505
  Transmission Date: 20141212
  Serious: Yes (Hospitalization)
  Sender: FDA-Public Use
  Company Number: US-JNJFOC-20140420481

PATIENT
  Age: 7 Year
  Sex: Female
  Weight: 20.3 kg

DRUGS (4)
  1. REMICADE [Suspect]
     Indication: COLITIS ULCERATIVE
     Route: 042
     Dates: start: 20120509
  2. REMICADE [Suspect]
     Indication: COLITIS ULCERATIVE
     Route: 042
     Dates: start: 201207, end: 20120803
  3. 6-MERCAPTOPURINE [Concomitant]
     Route: 065
  4. BUDESONIDE [Concomitant]
     Route: 065

REACTIONS (2)
  - Colitis ulcerative [Recovered/Resolved]
  - Abdominal abscess [Recovered/Resolved]
